FAERS Safety Report 4550574-5 (Version None)
Quarter: 2005Q1

REPORT INFORMATION
  Report Type: 
  Country: None (occurrence: None)
  Receive Date: 20050110
  Receipt Date: 20040820
  Transmission Date: 20050727
  Serious: Yes (Other)
  Sender: FDA-Public Use
  Company Number: 2003-06-3319

PATIENT
  Age: 27 Year
  Sex: Female
  Weight: 94.3482 kg

DRUGS (8)
  1. CLARITIN-D [Suspect]
     Dosage: ORAL
     Route: 048
  2. . [Concomitant]
  3. TRIMOX CAPSULES [Concomitant]
  4. AMOXICILLIN [Concomitant]
  5. DECONGESTANT (NOS) [Concomitant]
  6. IBUPROFEN [Concomitant]
  7. EXCEDRIN (MIGRAINE) [Concomitant]
  8. AZITHROMYCIN [Concomitant]

REACTIONS (4)
  - AMPHETAMINES POSITIVE [None]
  - DRUG SCREEN POSITIVE [None]
  - HYPERLIPIDAEMIA [None]
  - MYOCARDIAL INFARCTION [None]
